FAERS Safety Report 7355860-1 (Version None)
Quarter: 2011Q1

REPORT INFORMATION
  Report Type: 
  Country: None (occurrence: None)
  Receive Date: 20110316
  Receipt Date: 20110304
  Transmission Date: 20110831
  Serious: Yes (Other)
  Sender: FDA-Public Use
  Company Number: JP-JNJFOC-20100800134

PATIENT
  Sex: Male
  Weight: 102 kg

DRUGS (11)
  1. REMICADE [Suspect]
     Indication: PSORIATIC ARTHROPATHY
     Route: 042
  2. ISCOTIN [Concomitant]
     Indication: ANTIBIOTIC PROPHYLAXIS
  3. ALLELOCK [Concomitant]
     Indication: PROPHYLAXIS
     Route: 048
  4. SAXIZON [Concomitant]
     Indication: PROPHYLAXIS
  5. REMICADE [Suspect]
     Route: 042
  6. REMICADE [Suspect]
     Route: 042
  7. CICLOSPORIN [Concomitant]
     Indication: PSORIATIC ARTHROPATHY
     Route: 048
  8. TALION [Concomitant]
     Indication: PROPHYLAXIS
     Route: 048
  9. NEORAL [Concomitant]
     Indication: PSORIATIC ARTHROPATHY
     Route: 048
  10. REMICADE [Suspect]
     Route: 042
  11. CELECOX [Concomitant]
     Indication: PSORIATIC ARTHROPATHY
     Route: 048

REACTIONS (11)
  - HOT FLUSH [None]
  - OXYGEN SATURATION DECREASED [None]
  - INFUSION RELATED REACTION [None]
  - PALPITATIONS [None]
  - HYPERTENSION [None]
  - FEELING ABNORMAL [None]
  - DYSPNOEA [None]
  - RALES [None]
  - CHEST DISCOMFORT [None]
  - NAUSEA [None]
  - ERYTHEMA [None]
